FAERS Safety Report 7255246-4 (Version None)
Quarter: 2011Q1

REPORT INFORMATION
  Report Type: 
  Country: None (occurrence: None)
  Receive Date: 20110129
  Receipt Date: 20100326
  Transmission Date: 20110831
  Serious: No
  Sender: FDA-Public Use
  Company Number: US-ABBOTT-10P-163-0634765-00

PATIENT
  Sex: Female
  Weight: 49.94 kg

DRUGS (6)
  1. HUMIRA [Suspect]
  2. HUMIRA [Suspect]
  3. HUMIRA [Suspect]
     Dates: start: 20100201
  4. HUMIRA [Suspect]
  5. HUMIRA [Suspect]
     Indication: CROHN'S DISEASE
     Dates: start: 20091025
  6. HUMIRA [Suspect]

REACTIONS (2)
  - THROAT TIGHTNESS [None]
  - CHEST DISCOMFORT [None]
